FAERS Safety Report 10138411 (Version 2)
Quarter: 2014Q2

REPORT INFORMATION
  Report Type: Spontaneous
  Country: US (occurrence: US)
  Receive Date: 20140429
  Receipt Date: 20140523
  Transmission Date: 20141212
  Serious: Yes (Other)
  Sender: FDA-Public Use
  Company Number: ALCN2014US002620

PATIENT
  Age: 88 Year
  Sex: Female

DRUGS (2)
  1. SIMBRINZA [Suspect]
     Dosage: UNK
     Route: 047
     Dates: start: 201402, end: 201404
  2. SIMBRINZA [Suspect]
     Dosage: UNK
     Route: 047
     Dates: start: 201404

REACTIONS (3)
  - Uveitis [Recovering/Resolving]
  - Vision blurred [Recovering/Resolving]
  - Visual acuity reduced [Recovering/Resolving]
